FAERS Safety Report 22705222 (Version 4)
Quarter: 2023Q4

REPORT INFORMATION
  Report Type: Report from Study
  Country: US (occurrence: US)
  Receive Date: 20230714
  Receipt Date: 20231026
  Transmission Date: 20240109
  Serious: No
  Sender: FDA-Public Use
  Company Number: US-002147023-NVSC2023US154785

PATIENT
  Sex: Female

DRUGS (1)
  1. COSENTYX [Suspect]
     Active Substance: SECUKINUMAB
     Indication: Psoriatic arthropathy
     Dosage: UNK
     Route: 065
     Dates: start: 20230707

REACTIONS (6)
  - Joint lock [Unknown]
  - Finger deformity [Unknown]
  - Nail pitting [Unknown]
  - Quality of life decreased [Unknown]
  - Arthralgia [Unknown]
  - Therapeutic product effect incomplete [Unknown]
